FAERS Safety Report 12670432 (Version 1)
Quarter: 2016Q3

REPORT INFORMATION
  Report Type: Spontaneous
  Country: US (occurrence: US)
  Receive Date: 20160822
  Receipt Date: 20160822
  Transmission Date: 20161109
  Serious: Yes (Other)
  Sender: FDA-Public Use
  Company Number: US-GLAXOSMITHKLINE-US2016GSK119204

PATIENT
  Sex: Female

DRUGS (1)
  1. SORIATANE [Suspect]
     Active Substance: ACITRETIN
     Indication: NEOPLASM MALIGNANT
     Dosage: 25 MG, U
     Dates: start: 2014

REACTIONS (3)
  - Leg amputation [Unknown]
  - Malignant neoplasm progression [Unknown]
  - Product supply issue [Unknown]
